FAERS Safety Report 14353729 (Version 3)
Quarter: 2018Q1

REPORT INFORMATION
  Report Type: Spontaneous
  Country: FR (occurrence: FR)
  Receive Date: 20180105
  Receipt Date: 20180119
  Transmission Date: 20180509
  Serious: Yes (Hospitalization)
  Sender: FDA-Public Use
  Company Number: FR-BRISTOL-MYERS SQUIBB COMPANY-BMS-2017-118400

PATIENT
  Age: 47 Year
  Sex: Male

DRUGS (2)
  1. PARACETAMOL [Suspect]
     Active Substance: ACETAMINOPHEN
     Indication: PAIN
     Dosage: 3 G, UNK
     Route: 048
     Dates: start: 20171208, end: 20171210
  2. ELIQUIS [Suspect]
     Active Substance: APIXABAN
     Indication: CEREBROVASCULAR ACCIDENT PROPHYLAXIS
     Dosage: 10 MG, UNK
     Route: 048
     Dates: start: 201502, end: 20171210

REACTIONS (5)
  - Liver function test abnormal [Recovering/Resolving]
  - Blood bilirubin increased [Recovered/Resolved]
  - Aspartate aminotransferase increased [Recovered/Resolved]
  - Alanine aminotransferase increased [Recovering/Resolving]
  - Coagulation factor V level decreased [Recovered/Resolved]

NARRATIVE: CASE EVENT DATE: 20171208
